FAERS Safety Report 5225587-0 (Version None)
Quarter: 2007Q1

REPORT INFORMATION
  Report Type: 
  Country: None (occurrence: None)
  Receive Date: 20061201
  Receipt Date: 20060821
  Transmission Date: 20070707
  Serious: Yes (Death)
  Sender: FDA-Public Use
  Company Number: US200608002477

PATIENT
  Age: 15 Year
  Sex: Female
  Weight: 52.2 kg

DRUGS (2)
  1. CYMBALTA [Suspect]
     Indication: DEPRESSION
     Dosage: 30 MG
     Dates: start: 20050101, end: 20060613
  2. PROVIGIL [Concomitant]

REACTIONS (1)
  - COMPLETED SUICIDE [None]
